FAERS Safety Report 4942171-4 (Version None)
Quarter: 2006Q1

REPORT INFORMATION
  Report Type: 
  Country: None (occurrence: None)
  Receive Date: 20060313
  Receipt Date: 20050815
  Transmission Date: 20060701
  Serious: No
  Sender: FDA-Public Use
  Company Number: US-GLAXOSMITHKLINE-A0570363A

PATIENT

DRUGS (2)
  1. NICORETTE [Suspect]
  2. NICODERM CQ [Suspect]

REACTIONS (2)
  - INSOMNIA [None]
  - INTENTIONAL DRUG MISUSE [None]
